FAERS Safety Report 16327876 (Version 2)
Quarter: 2019Q2

REPORT INFORMATION
  Report Type: Report from Study
  Country: None (occurrence: US)
  Receive Date: 20190518
  Receipt Date: 20190518
  Transmission Date: 20190711
  Serious: Yes (Other)
  Sender: FDA-Public Use
  Company Number: US-ABBVIE-19K-163-2787935-00

PATIENT
  Age: 48 Year
  Sex: Male

DRUGS (3)
  1. VENETOCLAX. [Suspect]
     Active Substance: VENETOCLAX
     Indication: ACUTE MYELOID LEUKAEMIA
     Route: 048
  2. VIDAZA [Concomitant]
     Active Substance: AZACITIDINE
     Indication: PRODUCT USED FOR UNKNOWN INDICATION
  3. DECITABINE. [Concomitant]
     Active Substance: DECITABINE
     Indication: ACUTE MYELOID LEUKAEMIA

REACTIONS (2)
  - Off label use [Unknown]
  - Infection [Not Recovered/Not Resolved]
